FAERS Safety Report 5781852-X (Version None)
Quarter: 2008Q2

REPORT INFORMATION
  Report Type: 
  Country: None (occurrence: None)
  Receive Date: 20080623
  Receipt Date: 20080422
  Transmission Date: 20081010
  Serious: No
  Sender: FDA-Public Use
  Company Number: US-ASTRAZENECA-2008UW08046

PATIENT
  Age: 67 Year
  Sex: Male
  Weight: 88.5 kg

DRUGS (9)
  1. RHINOCORT [Suspect]
     Route: 045
  2. ZETIA [Concomitant]
  3. NIASPAN [Concomitant]
  4. ASPIRIN [Concomitant]
  5. ASTELIN [Concomitant]
  6. SINGULAIR [Concomitant]
  7. TOPROL-XL [Concomitant]
     Route: 048
  8. PROTONIX [Concomitant]
  9. BENICAR [Concomitant]

REACTIONS (2)
  - PHARMACEUTICAL PRODUCT COMPLAINT [None]
  - SKIN LACERATION [None]
